FAERS Safety Report 4442679-4 (Version None)
Quarter: 2004Q3

REPORT INFORMATION
  Report Type: 
  Country: None (occurrence: None)
  Receive Date: 20040903
  Receipt Date: 20040618
  Transmission Date: 20050211
  Serious: Yes (Other)
  Sender: FDA-Public Use
  Company Number: 2004UW12757

PATIENT
  Age: 71 Year
  Sex: Male
  Weight: 92.9874 kg

DRUGS (5)
  1. CRESTOR [Suspect]
     Dosage: 10 MG PO
     Route: 048
     Dates: start: 20040427, end: 20040601
  2. COUMADIN [Concomitant]
  3. LISINOPRIL [Concomitant]
  4. HYDROCHLOROTHIAZIDE [Concomitant]
  5. GLYBURIDE [Concomitant]

REACTIONS (2)
  - LOCAL SWELLING [None]
  - OEDEMA PERIPHERAL [None]
